FAERS Safety Report 6673295-1 (Version None)
Quarter: 2010Q2

REPORT INFORMATION
  Report Type: 
  Country: None (occurrence: None)
  Receive Date: 20100408
  Receipt Date: 20100329
  Transmission Date: 20101027
  Serious: Yes (Other)
  Sender: FDA-Public Use
  Company Number: CA-WATSON-2010-04377

PATIENT
  Age: 71 Year
  Sex: Male

DRUGS (1)
  1. VERAPAMIL HCL [Suspect]
     Indication: ATRIAL FIBRILLATION
     Dosage: 240 MG, SINGLE
     Route: 048

REACTIONS (1)
  - CARDIOGENIC SHOCK [None]
